FAERS Safety Report 6785192-1 (Version None)
Quarter: 2010Q2

REPORT INFORMATION
  Report Type: 
  Country: None (occurrence: None)
  Receive Date: 20100621
  Receipt Date: 20100621
  Transmission Date: 20101027
  Serious: Yes (Other)
  Sender: FDA-Public Use
  Company Number: None

PATIENT

DRUGS (1)
  1. HAWAIIAN TROPIC BABY FACE [Suspect]
     Dosage: ONE TIME
     Route: 061
     Dates: start: 20100605, end: 20100605

REACTIONS (2)
  - DRUG HYPERSENSITIVITY [None]
  - SUNBURN [None]
